FAERS Safety Report 8457913-3 (Version None)
Quarter: 2012Q2

REPORT INFORMATION
  Report Type: 
  Country: None (occurrence: None)
  Receive Date: 20120622
  Receipt Date: 20120613
  Transmission Date: 20120825
  Serious: Yes (Life-Threatening, Hospitalization, Other)
  Sender: FDA-Public Use
  Company Number: DE-JNJFOC-20120609829

PATIENT
  Sex: Male
  Weight: 75 kg

DRUGS (4)
  1. DIGITOXIN TAB [Concomitant]
     Indication: ATRIAL FIBRILLATION
     Dates: start: 20120402
  2. METFORMIN HCL [Concomitant]
  3. XARELTO [Suspect]
     Indication: CEREBROVASCULAR ACCIDENT PROPHYLAXIS
     Route: 065
     Dates: end: 20120509
  4. XARELTO [Suspect]
     Indication: ATRIAL FIBRILLATION
     Route: 065
     Dates: end: 20120509

REACTIONS (2)
  - SUBARACHNOID HAEMORRHAGE [None]
  - FALL [None]
